FAERS Safety Report 10165993 (Version 1)
Quarter: 2014Q2

REPORT INFORMATION
  Report Type: Spontaneous
  Country: ES (occurrence: ES)
  Receive Date: 20140511
  Receipt Date: 20140511
  Transmission Date: 20141212
  Serious: Yes (Life-Threatening, Hospitalization)
  Sender: FDA-Public Use
  Company Number: PHHY2014ES056251

PATIENT
  Age: 69 Year
  Sex: Male

DRUGS (6)
  1. SANDIMMUN [Suspect]
     Indication: HEART TRANSPLANT
     Dosage: 250 MG, ONCE DAILY
     Route: 048
     Dates: start: 201209
  2. CELLCEPT [Suspect]
     Indication: HEART TRANSPLANT
     Dosage: 2 G, ONCE DAILY
     Route: 048
     Dates: start: 201209, end: 20130322
  3. CELLCEPT [Suspect]
     Dosage: 1 G, ONCE DAILY
     Route: 048
     Dates: start: 20130323, end: 20130413
  4. DACORTIN [Concomitant]
     Indication: HEART TRANSPLANT
     Dosage: 7.5 MG, ONCE DAILY
     Route: 048
     Dates: start: 201209
  5. LEDERFOLIN [Concomitant]
     Indication: PROPHYLAXIS
     Dosage: 15 MG, ONCE DAILY
     Route: 048
     Dates: start: 201209
  6. SEPTRIN [Concomitant]
     Indication: ANTIBIOTIC PROPHYLAXIS
     Dosage: 2.4 G, UNK
     Route: 048
     Dates: start: 201209

REACTIONS (1)
  - Neutropenia [Recovered/Resolved]
